FAERS Safety Report 4468287-7 (Version None)
Quarter: 2004Q4

REPORT INFORMATION
  Report Type: 
  Country: None (occurrence: None)
  Receive Date: 20041007
  Receipt Date: 20041001
  Transmission Date: 20050328
  Serious: Yes (Hospitalization)
  Sender: FDA-Public Use
  Company Number: BR-ROCHE-382276

PATIENT
  Age: 69 Year
  Sex: Female

DRUGS (4)
  1. RIVOTRIL [Suspect]
     Indication: INSOMNIA
     Route: 048
     Dates: start: 20040915, end: 20040929
  2. DIOVAN HCT [Concomitant]
     Route: 048
  3. ALENDRONATE SODIUM [Concomitant]
     Route: 048
  4. SIMVASTATIN [Concomitant]
     Route: 048

REACTIONS (4)
  - AMNESIA [None]
  - DIZZINESS [None]
  - PAIN [None]
  - THROMBOSIS [None]
